FAERS Safety Report 11838624 (Version 1)
Quarter: 2015Q4

REPORT INFORMATION
  Report Type: Spontaneous
  Country: US (occurrence: US)
  Receive Date: 20151215
  Receipt Date: 20151215
  Transmission Date: 20160305
  Serious: No
  Sender: FDA-Public Use
  Company Number: US-SA-2015SA138510

PATIENT
  Sex: Female

DRUGS (1)
  1. THYROGEN [Suspect]
     Active Substance: THYROTROPIN ALFA
     Indication: DIAGNOSTIC PROCEDURE
     Route: 030
     Dates: start: 2002, end: 2002

REACTIONS (3)
  - Nausea [Recovered/Resolved]
  - Malaise [Recovered/Resolved]
  - Spinal disorder [Unknown]

NARRATIVE: CASE EVENT DATE: 2002
